FAERS Safety Report 7354386-9 (Version None)
Quarter: 2011Q1

REPORT INFORMATION
  Report Type: 
  Country: None (occurrence: None)
  Receive Date: 20110316
  Receipt Date: 20110301
  Transmission Date: 20110831
  Serious: Yes (Other)
  Sender: FDA-Public Use
  Company Number: PHHY2011US15568

PATIENT
  Sex: Female

DRUGS (14)
  1. TYLENOL [Concomitant]
     Dosage: TWO TABS EVERY SIX HOURS
  2. LYRICA [Concomitant]
     Dosage: 75-100 MG ONE CAPSULE THREE TIMES DAILY
     Dates: start: 20110218
  3. LISINOPRIL [Concomitant]
     Dosage: UNK
     Dates: start: 20110225
  4. SINGULAIR [Concomitant]
     Dosage: 1 DF
     Dates: start: 20110218
  5. CITALOPRAM HYDROBROMIDE [Concomitant]
     Dosage: 1.5 TAB DAILY
  6. PLAQUENIL [Concomitant]
     Dosage: TWO TABS ONE EACH DAY
     Dates: start: 20090608
  7. ARAVA [Concomitant]
     Dosage: ONE TAB DAILY
     Dates: start: 20070613
  8. RECLAST [Suspect]
     Dosage: 5 MG, YEARLY
     Dates: start: 20110216, end: 20110216
  9. MIRTAZAPINE [Concomitant]
     Dosage: ONE TABLET EACH AFTERNOON
     Dates: start: 20091014
  10. OMEPRAZOLE [Concomitant]
     Dosage: UNK
     Dates: start: 20090713
  11. SYNTHROID [Concomitant]
     Dosage: 100 MCG, 1 TAB DAILY
     Dates: start: 20110218
  12. ORENCIA [Concomitant]
     Dosage: UNK
     Dates: start: 20100207
  13. MULTI-VITAMINS [Concomitant]
     Dosage: ONE TAB ONCE EACH DAY
     Dates: start: 20070615
  14. FOLIC ACID [Concomitant]
     Dosage: 800 MCG (4DAILY)
     Dates: start: 20070613

REACTIONS (5)
  - LOSS OF CONSCIOUSNESS [None]
  - SYNCOPE [None]
  - PAIN [None]
  - BLOOD SODIUM DECREASED [None]
  - BLOOD PRESSURE DECREASED [None]
